FAERS Safety Report 7216423-1 (Version None)
Quarter: 2011Q1

REPORT INFORMATION
  Report Type: 
  Country: None (occurrence: None)
  Receive Date: 20110107
  Receipt Date: 20101212
  Transmission Date: 20110831
  Serious: Yes (Life-Threatening, Other)
  Sender: FDA-Public Use
  Company Number: NL-PFIZER INC-NL-WYE-H00639107

PATIENT
  Age: 67 Year
  Sex: Female
  Weight: 63.5 kg

DRUGS (23)
  1. CYTARABINE [Suspect]
     Dosage: 180 MG (TOTAL CUMULATIVE DOSE 900 MG) UNK
     Route: 065
     Dates: start: 20070425, end: 20070429
  2. CODEINE [Concomitant]
     Dosage: 10 MG (UNK)
  3. METOCLOPRAMIDE [Concomitant]
     Dosage: 10 MG (UNK)
  4. VANCOMYCIN [Concomitant]
     Dosage: 1000 MG (UNK)
  5. SPIRONOLACTONE [Concomitant]
     Dosage: 25 MG (UNK)
  6. ETOPOSIDE [Suspect]
     Indication: ACUTE MYELOID LEUKAEMIA
     Dosage: 180 MG (CUMULATIVE DOSE 540 MG) UNK
     Route: 065
     Dates: start: 20070425, end: 20070426
  7. AMPHOTERICIN B [Concomitant]
     Dosage: 5 ML (UNK)
  8. FUROSEMIDE [Concomitant]
     Dosage: 40 MG (UNK)
  9. METOPROLOL [Concomitant]
     Dosage: 50 MG (UNK)
  10. PANTOPRAZOLE [Concomitant]
  11. ZOPICLONE [Concomitant]
     Dosage: 7.5 MG (UNK)
  12. MITOXANTRONE [Suspect]
     Indication: ACUTE MYELOID LEUKAEMIA
     Dosage: 13 MG (TOTAL CUMULATIVE DOSE 39 MG) UNK
     Route: 065
     Dates: start: 20070313, end: 20070319
  13. CIPROFLOXACIN [Concomitant]
     Dosage: 500 MG (UNK)
  14. INSULIN HUMAN [Concomitant]
  15. PHYTOMENADIONE [Concomitant]
     Dosage: 0.5 MG (UKN)
  16. CEFTAZIDIME [Concomitant]
     Dosage: 2000 MG (UNK)
  17. GEMTUZUMAB OZOGAMICIN [Suspect]
     Indication: ACUTE MYELOID LEUKAEMIA
     Dosage: 5MG (TOTAL DOSE 25 MG) UNK
     Route: 065
     Dates: start: 20070116, end: 20070424
  18. ABSORBABLE GELATIN SPONGE [Concomitant]
  19. DESMOPRESSIN [Concomitant]
     Dosage: 4 MCG (UNK)
  20. GRANISETRON [Concomitant]
     Dosage: 1 MG (UNK)
  21. NIFEDIPINE [Concomitant]
     Dosage: 30 MG (UNK)
  22. TRANEXAMIC ACID [Concomitant]
     Dosage: 100 MG (UNK)
     Route: 042
  23. IDARUBICIN HCL [Suspect]
     Dosage: 14 M (TOTAL CUMULATIVE DOSE 42 MG) UNK
     Route: 065
     Dates: start: 20070425, end: 20070429

REACTIONS (1)
  - RECTAL HAEMORRHAGE [None]
